FAERS Safety Report 8779337 (Version 1)
Quarter: 2012Q4

REPORT INFORMATION
  Report Type: 
  Country: US (occurrence: US)
  Receive Date: 20120912
  Receipt Date: 20120912
  Transmission Date: 20130627
  Serious: Yes (Life-Threatening, Hospitalization)
  Sender: FDA-Public Use
  Company Number: US-BAYER-2012-094074

PATIENT
  Age: 23 Year
  Sex: Female
  Weight: 99.77 kg

DRUGS (5)
  1. YASMIN [Suspect]
     Indication: CONTRACEPTION
     Dosage: UNK
  2. PREVACID [Concomitant]
     Dosage: UNK UNK, As Needed
  3. ALEVE [Concomitant]
     Dosage: UNK UNK, As Needed
  4. SOMA [Concomitant]
     Dosage: 350 mg, tablets ^off and on^; 40 dispensed
  5. PROPOXYPHENE NAPSYLATE W/ACETAMINOPHENE [Concomitant]
     Dosage: 100-650 mg tablets; 50 dispensed

REACTIONS (4)
  - Pulmonary embolism [None]
  - Deep vein thrombosis [None]
  - Pelvic venous thrombosis [None]
  - Vena cava thrombosis [None]
